FAERS Safety Report 23669312 (Version 1)
Quarter: 2024Q1

REPORT INFORMATION
  Report Type: Spontaneous
  Country: US (occurrence: None)
  Receive Date: 20240324
  Receipt Date: 20240324
  Transmission Date: 20240410
  Serious: No
  Sender: FDA-Public Use
  Company Number: None

PATIENT
  Age: 41 Year
  Sex: Female
  Weight: 59 kg

DRUGS (1)
  1. GADOXETATE DISODIUM [Suspect]
     Active Substance: GADOXETATE DISODIUM
     Dosage: OTHER FREQUENCY : ONCE;?
     Route: 040
     Dates: start: 20231214, end: 20231214

REACTIONS (1)
  - Diplopia [None]

NARRATIVE: CASE EVENT DATE: 20231214
